FAERS Safety Report 18563880 (Version 1)
Quarter: 2020Q4

REPORT INFORMATION
  Report Type: Spontaneous
  Country: BR (occurrence: BR)
  Receive Date: 20201201
  Receipt Date: 20201201
  Transmission Date: 20210114
  Serious: Yes (Other)
  Sender: FDA-Public Use
  Company Number: BR-STRIDES ARCOLAB LIMITED-2020SP014708

PATIENT
  Age: 27 Year
  Sex: Female

DRUGS (3)
  1. ATAZANAVIR. [Suspect]
     Active Substance: ATAZANAVIR
     Indication: PRODUCT USED FOR UNKNOWN INDICATION
     Dosage: UNK, SINGLE COURSE WITH TOTAL DAILY DOSAGE OF 900 (UNITS UNSPECIFIED)
     Route: 048
     Dates: start: 2019
  2. RITONAVIR. [Suspect]
     Active Substance: RITONAVIR
     Indication: PRODUCT USED FOR UNKNOWN INDICATION
     Dosage: UNK, SINGLE COURSE WITH TOTAL DAILY DOSAGE OF 100 (UNITS UNSPECIFIED)
     Route: 048
     Dates: start: 2019
  3. LAMIVUDINE AND ZIDOVUDINE TABLETS [Suspect]
     Active Substance: LAMIVUDINE\ZIDOVUDINE
     Indication: PRODUCT USED FOR UNKNOWN INDICATION
     Dosage: UNK, SINGLE COURSE WITH TOTAL DAILY DOSAGE OF 300 (UNITS UNSPECIFIED)
     Route: 048
     Dates: start: 2019

REACTIONS (2)
  - Premature delivery [Unknown]
  - Maternal exposure during pregnancy [Unknown]

NARRATIVE: CASE EVENT DATE: 2019
